FAERS Safety Report 9303060 (Version 1)
Quarter: 2013Q2

REPORT INFORMATION
  Report Type: Spontaneous
  Country: US (occurrence: None)
  Receive Date: 20130521
  Receipt Date: 20130521
  Transmission Date: 20140414
  Serious: Yes (Death)
  Sender: FDA-Public Use
  Company Number: None

PATIENT
  Age: 15 Year
  Sex: Female
  Weight: 54.43 kg

DRUGS (4)
  1. KAPVAY 0.1 MG [Suspect]
     Indication: ATTENTION DEFICIT/HYPERACTIVITY DISORDER
     Route: 048
     Dates: start: 201206, end: 20130330
  2. STRATTERA 80MG [Suspect]
     Indication: ATTENTION DEFICIT/HYPERACTIVITY DISORDER
     Route: 048
     Dates: start: 201211, end: 20130330
  3. GABAPENTIN [Suspect]
     Indication: MIGRAINE
     Route: 048
     Dates: start: 20130207, end: 20130330
  4. LOESTRIN 24 FE TABLET [Suspect]
     Indication: CONTRACEPTION
     Dosage: 24 FE TABLET DAILY ORAL
     Dates: start: 201109, end: 20130330

REACTIONS (4)
  - Completed suicide [None]
  - Self injurious behaviour [None]
  - Accidental death [None]
  - Asphyxia [None]
